FAERS Safety Report 7690664-1 (Version None)
Quarter: 2011Q3

REPORT INFORMATION
  Report Type: 
  Country: None (occurrence: None)
  Receive Date: 20110817
  Receipt Date: 20110817
  Transmission Date: 20111222
  Serious: Yes (Hospitalization)
  Sender: FDA-Public Use
  Company Number: None

PATIENT
  Age: 64 Year
  Sex: Female
  Weight: 53 kg

DRUGS (10)
  1. ATIVAN [Concomitant]
  2. TRAZODONE HCL [Concomitant]
  3. SENOKOT [Concomitant]
  4. WELLBUTRIN [Concomitant]
  5. DECITABINE [Suspect]
     Indication: ACUTE MYELOID LEUKAEMIA
     Dosage: 20MG/M2 OVER 1 HOUR
     Dates: start: 20110216, end: 20110622
  6. CLOTRIMAZOLE [Concomitant]
  7. CALCIUM CARBONATE [Concomitant]
  8. ONDANSETRON [Suspect]
     Dosage: 8MG
     Dates: start: 20110116, end: 20110622
  9. VITAMIN D [Concomitant]
  10. GARLIC [Concomitant]

REACTIONS (3)
  - ACUTE MYELOID LEUKAEMIA [None]
  - FEBRILE NEUTROPENIA [None]
  - LEUKAEMIA RECURRENT [None]
